FAERS Safety Report 23420230 (Version 4)
Quarter: 2025Q1

REPORT INFORMATION
  Report Type: Report from Study
  Country: JP (occurrence: JP)
  Receive Date: 20240119
  Receipt Date: 20250119
  Transmission Date: 20250409
  Serious: Yes (Hospitalization, Other)
  Sender: TAKEDA
  Company Number: JP-TAKEDA-2024TJP000491

PATIENT
  Age: 10 Year
  Sex: Male
  Weight: 23.9 kg

DRUGS (20)
  1. TEDUGLUTIDE [Suspect]
     Active Substance: TEDUGLUTIDE
     Indication: Short-bowel syndrome
     Dosage: 0.05 MILLIGRAM/KILOGRAM, QD
     Dates: start: 20220118, end: 20240126
  2. TEDUGLUTIDE [Suspect]
     Active Substance: TEDUGLUTIDE
  3. TEDUGLUTIDE [Suspect]
     Active Substance: TEDUGLUTIDE
  4. TEDUGLUTIDE [Suspect]
     Active Substance: TEDUGLUTIDE
  5. LEVOCARNITINE [Concomitant]
     Active Substance: LEVOCARNITINE
  6. URSODIOL [Concomitant]
     Active Substance: URSODIOL
  7. .ALPHA.-TOCOPHEROL ACETATE [Concomitant]
     Active Substance: .ALPHA.-TOCOPHEROL ACETATE
  8. VITAMINS [Concomitant]
     Active Substance: VITAMINS
  9. TAURINE [Concomitant]
     Active Substance: TAURINE
  10. BIFIDOBACTERIUM LONGUM [Concomitant]
     Active Substance: BIFIDOBACTERIUM LONGUM
  11. CALCIUM LACTATE [Concomitant]
     Active Substance: CALCIUM LACTATE
  12. BIOTIN [Concomitant]
     Active Substance: BIOTIN
  13. ZINC [Concomitant]
     Active Substance: ZINC
  14. AMINO ACIDS\CARBOHYDRATES\MINERALS\SOYBEAN OIL\VITAMINS [Concomitant]
     Active Substance: AMINO ACIDS\CARBOHYDRATES\MINERALS\SOYBEAN OIL\VITAMINS
  15. Keishikashakuyakuto [Concomitant]
  16. TRIMEBUTINE MALEATE [Concomitant]
     Active Substance: TRIMEBUTINE MALEATE
  17. MIYA-BM [Concomitant]
     Active Substance: CLOSTRIDIUM BUTYRICUM SPORES STRAIN M-55
  18. BIFIDOBACTERIUM SPP. [Concomitant]
     Active Substance: BIFIDOBACTERIUM SPP.
  19. LEVOCARNITINE FF [Concomitant]
  20. HAINOSANKYUTO [Concomitant]

REACTIONS (6)
  - Melaena [Recovered/Resolved]
  - Cytomegalovirus enterocolitis [Recovered/Resolved]
  - COVID-19 [Recovering/Resolving]
  - Gastroenteritis [Recovering/Resolving]
  - Dehydration [Recovered/Resolved]
  - Abdominal distension [Recovered/Resolved]

NARRATIVE: CASE EVENT DATE: 20220124
